FAERS Safety Report 23613077 (Version 1)
Quarter: 2024Q1

REPORT INFORMATION
  Report Type: Report from Study
  Country: US (occurrence: US)
  Receive Date: 20240308
  Receipt Date: 20240308
  Transmission Date: 20240410
  Serious: Yes (Other)
  Sender: FDA-Public Use
  Company Number: US-JAZZ-2022-US-032251

PATIENT
  Sex: Female

DRUGS (28)
  1. XYREM [Suspect]
     Active Substance: SODIUM OXYBATE
     Indication: Narcolepsy
     Dosage: 3.75 GRAM, BID
  2. XYREM [Suspect]
     Active Substance: SODIUM OXYBATE
     Indication: Cataplexy
     Dosage: 2.75 GRAM, BID
     Route: 048
  3. XYREM [Suspect]
     Active Substance: SODIUM OXYBATE
     Indication: Somnolence
     Dosage: 3 GRAM, BID
     Route: 048
  4. ARMODAFINIL [Suspect]
     Active Substance: ARMODAFINIL
     Indication: Product used for unknown indication
     Dosage: UNK
  5. VYVANSE [Suspect]
     Active Substance: LISDEXAMFETAMINE DIMESYLATE
     Indication: Product used for unknown indication
     Dosage: UNK
     Route: 048
     Dates: start: 20231002
  6. HUMIRA [Concomitant]
     Active Substance: ADALIMUMAB
     Indication: Product used for unknown indication
     Dosage: PEN 40 MG/0.8 ML
     Dates: start: 20160401
  7. HUMIRA [Concomitant]
     Active Substance: ADALIMUMAB
     Dosage: 20 MG/0.25 ML
  8. HUMIRA [Concomitant]
     Active Substance: ADALIMUMAB
     Dosage: 20 MG/0.25 ML
  9. LEFLUNOMIDE [Concomitant]
     Active Substance: LEFLUNOMIDE
     Indication: Product used for unknown indication
     Dosage: UNK
     Route: 048
     Dates: start: 20150401
  10. SULFASALAZINE [Concomitant]
     Active Substance: SULFASALAZINE
     Indication: Product used for unknown indication
     Dosage: UNK
     Route: 048
     Dates: start: 20150401
  11. NP THYROID [Concomitant]
     Active Substance: LEVOTHYROXINE\LIOTHYRONINE
     Indication: Product used for unknown indication
     Dosage: 15 MG TABLET
     Dates: start: 20190401
  12. NP THYROID [Concomitant]
     Active Substance: LEVOTHYROXINE\LIOTHYRONINE
     Dosage: 30 MG TABLET
     Dates: start: 20190920
  13. METOPROLOL SUCCINATE [Concomitant]
     Active Substance: METOPROLOL SUCCINATE
     Indication: Product used for unknown indication
     Dosage: UNK
     Dates: start: 20210601
  14. ZYRTEC [Concomitant]
     Active Substance: CETIRIZINE HYDROCHLORIDE
     Indication: Product used for unknown indication
     Dosage: UNK
     Dates: start: 20220401
  15. GABAPENTIN [Concomitant]
     Active Substance: GABAPENTIN
     Indication: Product used for unknown indication
     Dosage: UNK
     Route: 048
     Dates: start: 20210601
  16. CONCERTA [Concomitant]
     Active Substance: METHYLPHENIDATE HYDROCHLORIDE
     Indication: Product used for unknown indication
     Dosage: UNK
     Route: 048
     Dates: start: 20210601
  17. CLARITIN-D NOS [Concomitant]
     Active Substance: LORATADINE\PSEUDOEPHEDRINE SULFATE
     Indication: Product used for unknown indication
     Dosage: UNK
     Dates: start: 20220401
  18. CORDYCEPS [CORDYCEPS SINENSIS] [Concomitant]
     Indication: Product used for unknown indication
     Dosage: UNK
     Dates: start: 20220501
  19. HERBALS [Concomitant]
     Active Substance: HERBALS
     Indication: Product used for unknown indication
     Dosage: UNK
     Dates: start: 20220501
  20. FLONASE ALLERGY RELIEF [Concomitant]
     Active Substance: FLUTICASONE PROPIONATE
     Indication: Product used for unknown indication
     Dosage: UNK
     Dates: start: 20220501
  21. DIETARY SUPPLEMENT\GRAPE SEED EXTRACT [Concomitant]
     Active Substance: DIETARY SUPPLEMENT\GRAPE SEED EXTRACT
     Indication: Product used for unknown indication
     Dosage: UNK
     Dates: start: 20020801
  22. CARBINOXAMINE MALEATE [Concomitant]
     Active Substance: CARBINOXAMINE MALEATE
     Indication: Product used for unknown indication
     Dosage: UNK
     Dates: start: 20230314
  23. VITAMINS NOS [Concomitant]
     Active Substance: VITAMINS
     Indication: Product used for unknown indication
     Dosage: UNK
     Dates: start: 20230201
  24. METOPROLOL TARTRATE [Concomitant]
     Active Substance: METOPROLOL TARTRATE
     Indication: Product used for unknown indication
     Dosage: UNK
  25. EPIPEN [Concomitant]
     Active Substance: EPINEPHRINE
     Indication: Product used for unknown indication
     Dosage: 0.2 MG/0.5 ML
     Dates: start: 20230818
  26. ALBUTEROL SULFATE [Concomitant]
     Active Substance: ALBUTEROL SULFATE
     Indication: Product used for unknown indication
     Dosage: UNK
  27. CANNABIS SATIVA SUBSP. INDICA TOP [Concomitant]
     Active Substance: CANNABIS SATIVA SUBSP. INDICA TOP
     Indication: Product used for unknown indication
     Dosage: UNK
     Route: 048
  28. OMEPRAZOLE [Concomitant]
     Active Substance: OMEPRAZOLE
     Indication: Product used for unknown indication
     Dosage: UNK
     Route: 048

REACTIONS (7)
  - Crohn^s disease [Unknown]
  - Head discomfort [Unknown]
  - Intrusive thoughts [Unknown]
  - Headache [Unknown]
  - Anxiety [Recovered/Resolved]
  - Product administration interrupted [Unknown]
  - Product prescribing issue [Unknown]
